FAERS Safety Report 19389389 (Version 1)
Quarter: 2021Q2

REPORT INFORMATION
  Report Type: Spontaneous
  Country: US (occurrence: US)
  Receive Date: 20210608
  Receipt Date: 20210608
  Transmission Date: 20210717
  Serious: No
  Sender: FDA-Public Use
  Company Number: US-JNJFOC-20210547990

PATIENT

DRUGS (1)
  1. WOMENS ROGAINE UNSCENTED [Suspect]
     Active Substance: MINOXIDIL
     Indication: ALOPECIA
     Route: 061

REACTIONS (4)
  - Application site hypersensitivity [Recovered/Resolved]
  - Application site vesicles [Recovering/Resolving]
  - Application site pain [Recovering/Resolving]
  - Application site inflammation [Recovering/Resolving]

NARRATIVE: CASE EVENT DATE: 20210523
